FAERS Safety Report 9380275 (Version 1)
Quarter: 2013Q3

REPORT INFORMATION
  Report Type: Report from Study
  Country: US (occurrence: US)
  Receive Date: 20130702
  Receipt Date: 20130702
  Transmission Date: 20140515
  Serious: Yes (Hospitalization)
  Sender: FDA-Public Use
  Company Number: US-GLAXOSMITHKLINE-A1029251A

PATIENT
  Age: 50 Year
  Sex: Male
  Weight: 83.4 kg

DRUGS (10)
  1. BELIMUMAB [Suspect]
     Indication: SYSTEMIC LUPUS ERYTHEMATOSUS
     Dosage: 1MGK CYCLIC
     Route: 042
     Dates: start: 20071218
  2. FLEXERIL [Concomitant]
     Indication: SYSTEMIC LUPUS ERYTHEMATOSUS
     Dosage: 10MG AT NIGHT
     Route: 048
     Dates: start: 2003
  3. TRAZODONE [Concomitant]
     Indication: SYSTEMIC LUPUS ERYTHEMATOSUS
     Dosage: 50MG AT NIGHT
     Route: 048
     Dates: start: 2003
  4. PLAQUENIL [Concomitant]
     Indication: SYSTEMIC LUPUS ERYTHEMATOSUS
     Dosage: 200MG TWICE PER DAY
     Route: 048
     Dates: start: 2005
  5. LISINOPRIL [Concomitant]
     Indication: HYPERTENSION
     Dosage: 20MG PER DAY
     Route: 048
     Dates: start: 2006
  6. PREDNISONE [Concomitant]
     Indication: SYSTEMIC LUPUS ERYTHEMATOSUS
     Dosage: 5MG PER DAY
     Route: 048
     Dates: start: 20070820
  7. MS CONTIN [Concomitant]
     Indication: SYSTEMIC LUPUS ERYTHEMATOSUS
     Dosage: 30MG THREE TIMES PER DAY
     Route: 048
     Dates: start: 2005
  8. TOPROL XL [Concomitant]
     Indication: HYPERTENSION
     Dosage: 50MG PER DAY
     Route: 048
     Dates: start: 20080921
  9. TESTOSTERONE CREAM [Concomitant]
     Indication: BLOOD TESTOSTERONE DECREASED
     Route: 061
  10. NEURONTIN [Concomitant]
     Indication: SYSTEMIC LUPUS ERYTHEMATOSUS
     Dosage: 700MG THREE TIMES PER DAY
     Route: 048
     Dates: start: 20130517

REACTIONS (1)
  - Hidradenitis [Recovered/Resolved]
